FAERS Safety Report 16154036 (Version 2)
Quarter: 2019Q2

REPORT INFORMATION
  Report Type: Spontaneous
  Country: DE (occurrence: DE)
  Receive Date: 20190403
  Receipt Date: 20190412
  Transmission Date: 20190711
  Serious: Yes (Other)
  Sender: FDA-Public Use
  Company Number: DE-ALLERGAN-1914545US

PATIENT
  Sex: Female

DRUGS (6)
  1. CARIPRAZINE HCL - BP [Suspect]
     Active Substance: CARIPRAZINE HYDROCHLORIDE
     Indication: SCHIZOPHRENIA
     Dosage: 6 MG, QD
     Route: 048
     Dates: start: 20190105
  2. CARIPRAZINE HCL - BP [Suspect]
     Active Substance: CARIPRAZINE HYDROCHLORIDE
     Dosage: 6 MG, QD
     Route: 048
     Dates: start: 201810, end: 20181115
  3. CARIPRAZINE HCL - BP [Suspect]
     Active Substance: CARIPRAZINE HYDROCHLORIDE
     Dosage: UNK
     Route: 048
     Dates: start: 20181116, end: 20190104
  4. TAVOR EXPIDET [Concomitant]
     Active Substance: LORAZEPAM
     Dosage: 1 MG
     Dates: start: 2009
  5. CLOZAPINE. [Concomitant]
     Active Substance: CLOZAPINE
     Indication: SCHIZOPHRENIA
     Dosage: 50 MG
     Route: 065
     Dates: start: 2006
  6. CLOZAPINE. [Concomitant]
     Active Substance: CLOZAPINE
     Dosage: 100 MG
     Route: 065
     Dates: start: 2006

REACTIONS (1)
  - Facial paralysis [Recovered/Resolved]

NARRATIVE: CASE EVENT DATE: 201812
